FAERS Safety Report 7455835-8 (Version None)
Quarter: 2011Q2

REPORT INFORMATION
  Report Type: 
  Country: None (occurrence: None)
  Receive Date: 20110503
  Receipt Date: 20110428
  Transmission Date: 20111010
  Serious: Yes (Death)
  Sender: FDA-Public Use
  Company Number: PHHY2011NL36376

PATIENT
  Sex: Female

DRUGS (2)
  1. ZOMETA [Suspect]
     Dosage: 4 MG/5 ML
     Dates: start: 20110415
  2. ZOMETA [Suspect]
     Indication: BREAST CANCER
     Dosage: 4 MG/5 ML

REACTIONS (1)
  - EUTHANASIA [None]
